FAERS Safety Report 17886065 (Version 1)
Quarter: 2020Q2

REPORT INFORMATION
  Report Type: Report from Study
  Country: ES (occurrence: ES)
  Receive Date: 20200611
  Receipt Date: 20200611
  Transmission Date: 20200714
  Serious: Yes (Other)
  Sender: FDA-Public Use
  Company Number: ES-MYLANLABS-2020M1055595

PATIENT
  Age: 64 Year
  Sex: Male
  Weight: 98 kg

DRUGS (5)
  1. KALETRA [Suspect]
     Active Substance: LOPINAVIR\RITONAVIR
     Indication: COVID-19
     Dosage: 2 DOSAGE FORM, QD
     Route: 048
     Dates: start: 20200319, end: 20200323
  2. CEFTRIAXONA                        /00672201/ [Suspect]
     Active Substance: CEFTRIAXONE
     Indication: COVID-19
     Dosage: 500 MILLIGRAM, QD
     Route: 042
     Dates: start: 20200319, end: 20200323
  3. INTERFERON BETA-1A [Suspect]
     Active Substance: INTERFERON BETA-1A
     Indication: COVID-19
     Dosage: 30 MICROGRAM, QD
     Route: 058
     Dates: start: 20200319, end: 20200323
  4. HIDROXICLOROQUINA SULFATO [Suspect]
     Active Substance: HYDROXYCHLOROQUINE SULFATE
     Indication: COVID-19
     Dosage: 400 MILLIGRAM, QD
     Route: 048
     Dates: start: 20200319, end: 20200331
  5. AZITHROMYCIN ANHYDROUS. [Suspect]
     Active Substance: AZITHROMYCIN ANHYDROUS
     Indication: COVID-19
     Dosage: 500 MILLIGRAM, QD
     Route: 048
     Dates: start: 20200319, end: 20200323

REACTIONS (2)
  - Hepatitis cholestatic [Not Recovered/Not Resolved]
  - Off label use [Unknown]

NARRATIVE: CASE EVENT DATE: 20200319
